FAERS Safety Report 7000384-4 (Version None)
Quarter: 2010Q3

REPORT INFORMATION
  Report Type: 
  Country: None (occurrence: None)
  Receive Date: 20100920
  Receipt Date: 20071128
  Transmission Date: 20110219
  Serious: Yes (Other)
  Sender: FDA-Public Use
  Company Number: US-ASTRAZENECA-2006UW08129

PATIENT
  Age: 19020 Day
  Sex: Female
  Weight: 54 kg

DRUGS (17)
  1. SEROQUEL [Suspect]
     Indication: INSOMNIA
     Route: 048
     Dates: start: 20041210
  2. SEROQUEL [Suspect]
     Indication: DEPRESSION
     Route: 048
     Dates: start: 20041210
  3. SEROQUEL [Suspect]
     Indication: BIPOLAR DISORDER
     Route: 048
     Dates: start: 20041210
  4. SEROQUEL [Suspect]
     Route: 048
     Dates: start: 20050301, end: 20050601
  5. SEROQUEL [Suspect]
     Route: 048
     Dates: start: 20050301, end: 20050601
  6. SEROQUEL [Suspect]
     Route: 048
     Dates: start: 20050301, end: 20050601
  7. WELLBUTRIN [Concomitant]
  8. DEPAKOTE [Concomitant]
  9. DEPAKOTE [Concomitant]
     Dates: start: 20001114
  10. SOMA [Concomitant]
     Dates: start: 20001114
  11. PRILOSEC [Concomitant]
     Dates: start: 20001114
  12. LIPITOR [Concomitant]
     Dates: start: 20001114
  13. AMBIEN [Concomitant]
     Dates: start: 20001114
  14. LITHIUM [Concomitant]
     Dates: start: 20010427
  15. LORAZEPAM [Concomitant]
     Dates: start: 20040928
  16. DEMEROL [Concomitant]
     Dosage: DOSE: 50 MG PRN
     Dates: start: 20001114
  17. NEURONTIN [Concomitant]
     Dosage: 1 IN MORNING 2 AT NIGHT
     Dates: start: 20010705

REACTIONS (2)
  - DIABETES MELLITUS [None]
  - PANCREATITIS [None]
